FAERS Safety Report 22060906 (Version 1)
Quarter: 2023Q1

REPORT INFORMATION
  Report Type: Report from Study
  Country: JP (occurrence: None)
  Receive Date: 20230303
  Receipt Date: 20230303
  Transmission Date: 20230418
  Serious: Yes (Death, Hospitalization, Other)
  Sender: FDA-Public Use
  Company Number: 2023A053321

PATIENT
  Age: 78 Year
  Sex: Male
  Weight: 64 kg

DRUGS (20)
  1. BRILINTA [Suspect]
     Active Substance: TICAGRELOR
     Indication: Myocardial infarction
     Route: 048
     Dates: start: 20180601, end: 20190218
  2. CARVEDILOL [Suspect]
     Active Substance: CARVEDILOL
     Dosage: 2.5 MG
     Route: 048
     Dates: end: 20190218
  3. REMINYL [Suspect]
     Active Substance: GALANTAMINE
     Dosage: 16 MG
     Route: 048
     Dates: end: 20190218
  4. AMLODIPINE BESYLATE\AZILSARTAN [Suspect]
     Active Substance: AMLODIPINE BESYLATE\AZILSARTAN
     Route: 048
     Dates: end: 20190218
  5. ASPIRIN [Concomitant]
     Active Substance: ASPIRIN
     Dosage: NUMBER OF SEPARATE DOSAGES UNKNOWN
     Route: 065
     Dates: end: 20190218
  6. CILOSTAZOL [Concomitant]
     Active Substance: CILOSTAZOL
     Indication: Cerebral infarction
     Dosage: NUMBER OF SEPARATE DOSAGES UNKNOWN
     Route: 065
     Dates: end: 20190218
  7. CARBIDOPA\LEVODOPA [Concomitant]
     Active Substance: CARBIDOPA\LEVODOPA
     Dosage: NUMBER OF SEPARATE DOSAGES UNKNOWN
     Route: 048
     Dates: end: 20190218
  8. ROSUVASTATIN [Concomitant]
     Active Substance: ROSUVASTATIN
     Dosage: NUMBER OF SEPARATE DOSAGES UNKNOWN
     Route: 048
  9. MIRABEGRON [Concomitant]
     Active Substance: MIRABEGRON
     Dosage: NUMBER OF SEPARATE DOSAGES UNKNOWN
     Route: 048
  10. FUROSEMIDE [Concomitant]
     Active Substance: FUROSEMIDE
     Route: 048
  11. SPIRONOLACTONE [Concomitant]
     Active Substance: SPIRONOLACTONE
     Dosage: NUMBER OF SEPARATE DOSAGES UNKNOWN
     Route: 048
  12. NICORANDIL [Concomitant]
     Active Substance: NICORANDIL
     Indication: Myocardial infarction
     Dosage: NUMBER OF SEPARATE DOSAGES UNKNOWN
     Route: 048
  13. LORAZEPAM [Concomitant]
     Active Substance: LORAZEPAM
     Dosage: NUMBER OF SEPARATE DOSAGES UNKNOWN
     Route: 048
  14. ESTAZOLAM [Concomitant]
     Active Substance: ESTAZOLAM
     Dosage: NUMBER OF SEPARATE DOSAGES UNKNOWN
     Route: 048
  15. QUETIAPINE [Concomitant]
     Active Substance: QUETIAPINE
     Dosage: NUMBER OF SEPARATE DOSAGES UNKNOWN
     Route: 048
  16. MEMANTINE HYDROCHLORIDE [Concomitant]
     Active Substance: MEMANTINE HYDROCHLORIDE
     Dosage: NUMBER OF SEPARATE DOSAGES UNKNOWN
     Route: 048
  17. MEMANTINE HYDROCHLORIDE [Concomitant]
     Active Substance: MEMANTINE HYDROCHLORIDE
     Dosage: NUMBER OF SEPARATE DOSAGES UNKNOWN
     Route: 048
     Dates: start: 20181016, end: 20190218
  18. CHLORPROMAZINE [Concomitant]
     Active Substance: CHLORPROMAZINE
     Dosage: NUMBER OF SEPARATE DOSAGES UNKNOWN
     Route: 048
  19. MAGNESIUM OXIDE [Concomitant]
     Active Substance: MAGNESIUM OXIDE
     Dosage: NUMBER OF SEPARATE DOSAGES UNKNOWN
     Route: 048
     Dates: start: 20180823, end: 20190218
  20. HALOPERIDOL [Concomitant]
     Active Substance: HALOPERIDOL
     Dosage: NUMBER OF SEPARATE DOSAGES UNKNOWN
     Route: 048
     Dates: start: 20181016, end: 20190218

REACTIONS (5)
  - Cerebral infarction [Fatal]
  - Sinus node dysfunction [Recovered/Resolved]
  - Loss of consciousness [Not Recovered/Not Resolved]
  - Atrioventricular dissociation [Recovering/Resolving]
  - Nodal rhythm [Recovering/Resolving]

NARRATIVE: CASE EVENT DATE: 20181016
